FAERS Safety Report 23452901 (Version 1)
Quarter: 2024Q1

REPORT INFORMATION
  Report Type: Spontaneous
  Country: AT (occurrence: AT)
  Receive Date: 20240129
  Receipt Date: 20240129
  Transmission Date: 20240410
  Serious: Yes (Other)
  Sender: FDA-Public Use
  Company Number: AT-BAYER-2024A013027

PATIENT
  Age: 80 Year
  Sex: Male

DRUGS (2)
  1. NUBEQA [Suspect]
     Active Substance: DAROLUTAMIDE
     Dosage: UNK
  2. NUBEQA [Suspect]
     Active Substance: DAROLUTAMIDE
     Dosage: 600 MG

REACTIONS (3)
  - Acute kidney injury [Unknown]
  - Blood creatine phosphokinase increased [Unknown]
  - Drug interaction [None]

NARRATIVE: CASE EVENT DATE: 20231101
